FAERS Safety Report 4515644-6 (Version None)
Quarter: 2004Q4

REPORT INFORMATION
  Report Type: 
  Country: None (occurrence: None)
  Receive Date: 20041126
  Receipt Date: 20041115
  Transmission Date: 20050328
  Serious: Yes (Death, Other)
  Sender: FDA-Public Use
  Company Number: 2004091192

PATIENT
  Age: 18 Year
  Sex: Female

DRUGS (1)
  1. CETIRIZINE (TABLETS) (CETIRIZINE) [Suspect]
     Indication: ILL-DEFINED DISORDER
     Dosage: 270 MG

REACTIONS (9)
  - BLOOD PRESSURE DECREASED [None]
  - CARDIAC ARREST [None]
  - COMPLETED SUICIDE [None]
  - CONVULSION [None]
  - HEART RATE DECREASED [None]
  - HYPOKALAEMIA [None]
  - METABOLIC ACIDOSIS [None]
  - POISONING [None]
  - VENTRICULAR FIBRILLATION [None]
